FAERS Safety Report 14249827 (Version 1)
Quarter: 2017Q4

REPORT INFORMATION
  Report Type: Spontaneous
  Country: US (occurrence: US)
  Receive Date: 20171204
  Receipt Date: 20171204
  Transmission Date: 20180321
  Serious: Yes (Hospitalization, Disabling)
  Sender: FDA-Public Use
  Company Number: None

PATIENT
  Age: 57 Year
  Sex: Female
  Weight: 89.1 kg

DRUGS (2)
  1. LISOPRIL [Concomitant]
     Active Substance: LISINOPRIL
  2. DELFLEX WITH DEXTROSE 2.5% [Suspect]
     Active Substance: CALCIUM CHLORIDE\DEXTROSE\MAGNESIUM CHLORIDE\SODIUM CHLORIDE\SODIUM LACTATE
     Indication: RENAL DISORDER
     Dosage: STRENGTH GREEN 1 LITRE(S) ? QUANTITY:2 BAGS;?
     Dates: end: 20170913

REACTIONS (3)
  - Urinary tract infection [None]
  - Product substitution issue [None]
  - Malaise [None]

NARRATIVE: CASE EVENT DATE: 20171123
